FAERS Safety Report 6521693-9 (Version None)
Quarter: 2009Q4

REPORT INFORMATION
  Report Type: 
  Country: None (occurrence: None)
  Receive Date: 20091230
  Receipt Date: 20091225
  Transmission Date: 20100525
  Serious: Yes (Life-Threatening)
  Sender: FDA-Public Use
  Company Number: PHHY2009JP53712

PATIENT
  Sex: Female
  Weight: 40 kg

DRUGS (12)
  1. DIOVAN [Suspect]
     Indication: HYPERTENSION
     Dosage: 40 MG DAILY
     Route: 048
     Dates: start: 20091105, end: 20091109
  2. DIOVAN [Suspect]
     Dosage: 80 MG PER DAY
     Route: 048
     Dates: start: 20091110, end: 20091120
  3. DIOVAN [Suspect]
     Dosage: 160 MG DAILY
     Route: 048
     Dates: start: 20091120, end: 20091128
  4. DISOPYRAMIDE [Suspect]
     Indication: ARRHYTHMIA
     Dosage: UNK
     Route: 048
     Dates: start: 20091122, end: 20091128
  5. PIMENOL [Concomitant]
     Indication: ARRHYTHMIA
     Dosage: UNK
     Dates: start: 19970101, end: 20091122
  6. VOLTAREN [Concomitant]
     Indication: BACK PAIN
     Dosage: 75 MG, UNK
     Route: 048
     Dates: start: 20090901, end: 20091128
  7. HERBESSER [Concomitant]
     Indication: HYPERTENSION
     Dosage: 90 MG, UNK
     Route: 048
     Dates: start: 20090901
  8. HERBESSER [Concomitant]
     Dosage: 90 MG, UNK
     Route: 048
  9. SIGMART [Concomitant]
     Indication: HYPERTENSION
     Dosage: 15 MG, UNK
     Route: 048
     Dates: start: 20090901, end: 20091128
  10. OPALMON [Concomitant]
     Indication: ARTERIOSCLEROSIS OBLITERANS
     Dosage: UNK
     Route: 048
     Dates: start: 20090901, end: 20091128
  11. ITOROL [Concomitant]
     Indication: ANGINA PECTORIS
     Dosage: 40 MG, UNK
     Route: 048
     Dates: start: 20090901, end: 20091128
  12. ASPIRIN [Concomitant]
     Indication: CEREBRAL INFARCTION
     Dosage: 100 MG, UNK
     Route: 048
     Dates: start: 20091128

REACTIONS (7)
  - ALTERED STATE OF CONSCIOUSNESS [None]
  - APHASIA [None]
  - DIZZINESS [None]
  - DRUG INEFFECTIVE [None]
  - HYPOGLYCAEMIA [None]
  - MUSCULAR WEAKNESS [None]
  - SYNCOPE [None]
